FAERS Safety Report 8933630 (Version 4)
Quarter: 2013Q1

REPORT INFORMATION
  Report Type: Spontaneous
  Country: JP (occurrence: JP)
  Receive Date: 20121128
  Receipt Date: 20130205
  Transmission Date: 20140127
  Serious: Yes (Death, Life-Threatening, Hospitalization)
  Sender: FDA-Public Use
  Company Number: JP-AMGEN-JPNSP2012076328

PATIENT
  Age: 77 Year
  Sex: Female
  Weight: 41.1 kg

DRUGS (10)
  1. ENBREL [Suspect]
     Indication: RHEUMATOID ARTHRITIS
     Dosage: 25 MG, 2X/DAY
     Route: 058
     Dates: start: 20090525, end: 20091117
  2. ENBREL [Suspect]
     Dosage: 50 MG, UNK
     Route: 058
     Dates: start: 20091117, end: 20100112
  3. RHEUMATREX [Suspect]
     Indication: RHEUMATOID ARTHRITIS
     Dosage: 15 MG, WEEKLY
     Route: 048
  4. RHEUMATREX [Suspect]
     Dosage: 10 MG, WEEKLY
     Route: 048
     Dates: end: 20120508
  5. PREDNISOLONE [Suspect]
     Indication: RHEUMATOID ARTHRITIS
     Dosage: 5 MG, 1X/DAY
     Route: 048
  6. FOLIAMIN [Concomitant]
     Indication: PROPHYLAXIS
     Dosage: 10 MG, WEEKLY
     Route: 048
  7. FOLIAMIN [Concomitant]
     Dosage: 5 MG, WEEKLY
     Route: 048
     Dates: end: 20120508
  8. CELECOX [Concomitant]
     Indication: RHEUMATOID ARTHRITIS
     Dosage: 200 MG, 2X/DAY
     Route: 048
  9. GASTER D [Concomitant]
     Indication: GASTRITIS
     Dosage: 10 MG, 2X/DAY
     Route: 048
  10. MYSLEE [Concomitant]
     Indication: INSOMNIA
     Dosage: 5 MG, 1X/DAY
     Route: 048

REACTIONS (3)
  - Small cell lung cancer [Fatal]
  - Small cell lung cancer metastatic [None]
  - Metastases to bone [None]
